FAERS Safety Report 12885488 (Version 1)
Quarter: 2016Q4

REPORT INFORMATION
  Report Type: Spontaneous
  Country: US (occurrence: US)
  Receive Date: 20161025
  Receipt Date: 20161025
  Transmission Date: 20170207
  Serious: No
  Sender: FDA-Public Use
  Company Number: None

PATIENT

DRUGS (1)
  1. RECALL- MITOMYCIN 40MG [Suspect]
     Active Substance: MITOMYCIN

REACTIONS (2)
  - Rash [None]
  - Rash pruritic [None]

NARRATIVE: CASE EVENT DATE: 20160518
